FAERS Safety Report 6304020-1 (Version None)
Quarter: 2009Q3

REPORT INFORMATION
  Report Type: 
  Country: None (occurrence: None)
  Receive Date: 20090810
  Receipt Date: 20090731
  Transmission Date: 20100115
  Serious: Yes (Death, Other)
  Sender: FDA-Public Use
  Company Number: US-PFIZER INC-2009237092

PATIENT
  Sex: Female
  Weight: 3.683 kg

DRUGS (1)
  1. FOSPHENYTOIN [Suspect]
     Indication: CONVULSION
     Dosage: 160 MG, UNK
     Route: 042
     Dates: start: 20090301, end: 20090301

REACTIONS (5)
  - APNOEA [None]
  - CARDIAC ARREST [None]
  - INTUSSUSCEPTION [None]
  - UNRESPONSIVE TO STIMULI [None]
  - VIRAL MYOCARDITIS [None]
